FAERS Safety Report 6487386-1 (Version None)
Quarter: 2009Q4

REPORT INFORMATION
  Report Type: 
  Country: None (occurrence: None)
  Receive Date: 20091209
  Receipt Date: 20091209
  Transmission Date: 20100525
  Serious: Yes (Hospitalization)
  Sender: FDA-Public Use
  Company Number: None

PATIENT
  Age: 42 Year
  Sex: Female
  Weight: 93 kg

DRUGS (2)
  1. DOXORUBICIN 60 MG / M2  600MG/ M2 WKS X 4  IV [Suspect]
     Dosage: 60 MG/M2 Q2WKS X 4 IV
     Route: 042
     Dates: start: 20090701, end: 20090811
  2. AVASTIN [Suspect]
     Dosage: 10 MG/HR Q2WKS X 3 WKS IV
     Route: 042
     Dates: start: 20090701, end: 20090726

REACTIONS (4)
  - INFECTION [None]
  - POST PROCEDURAL COMPLICATION [None]
  - SKIN FLAP NECROSIS [None]
  - URINARY TRACT INFECTION [None]
